FAERS Safety Report 5600284-8 (Version None)
Quarter: 2008Q1

REPORT INFORMATION
  Report Type: 
  Country: None (occurrence: None)
  Receive Date: 20080123
  Receipt Date: 20080109
  Transmission Date: 20080703
  Serious: Yes (Hospitalization)
  Sender: FDA-Public Use
  Company Number: FR-AVENTIS-200713666FR

PATIENT
  Age: 71 Year
  Sex: Female
  Weight: 80 kg

DRUGS (8)
  1. ARAVA [Suspect]
     Indication: RHEUMATOID ARTHRITIS
     Route: 048
     Dates: start: 20070703, end: 20071010
  2. PREDNISONE [Concomitant]
     Indication: RHEUMATOID ARTHRITIS
     Route: 048
  3. APROVEL [Concomitant]
     Route: 048
  4. FLUOXETINE [Concomitant]
     Indication: DEPRESSION
     Route: 048
  5. INIPOMP                            /01263201/ [Concomitant]
     Route: 048
  6. OSTRAM                             /00183801/ [Concomitant]
     Route: 048
  7. METOCLOPRAMIDE HCL [Concomitant]
     Indication: NAUSEA
     Route: 048
  8. ZOCOR [Concomitant]
     Route: 048

REACTIONS (5)
  - BRONCHITIS [None]
  - BRONCHOSPASM [None]
  - COUGH [None]
  - DYSPNOEA [None]
  - PYREXIA [None]
